FAERS Safety Report 13226122 (Version 1)
Quarter: 2017Q1

REPORT INFORMATION
  Report Type: Spontaneous
  Country: US (occurrence: US)
  Receive Date: 20170212
  Receipt Date: 20170212
  Transmission Date: 20170428
  Serious: Yes (Other)
  Sender: FDA-Public Use
  Company Number: None

PATIENT
  Age: 25 Year
  Sex: Female
  Weight: 56.7 kg

DRUGS (1)
  1. METRONIDAZOLE VAGINAL GEL USP, 0.75% (TOLMAR INC) [Suspect]
     Active Substance: METRONIDAZOLE
     Indication: BACTERIAL VAGINOSIS
     Dosage: AT BEDTIME VAGINAL 1 APPLICATOR FULL?
     Route: 067

REACTIONS (3)
  - Frequent bowel movements [None]
  - Haematochezia [None]
  - Cervix haemorrhage uterine [None]

NARRATIVE: CASE EVENT DATE: 20170208
